FAERS Safety Report 25488879 (Version 1)
Quarter: 2025Q2

REPORT INFORMATION
  Report Type: Spontaneous
  Country: CA (occurrence: CA)
  Receive Date: 20250627
  Receipt Date: 20250627
  Transmission Date: 20250716
  Serious: Yes (Other)
  Sender: PFIZER
  Company Number: CA-PFIZER INC-202500129099

PATIENT
  Sex: Female

DRUGS (1)
  1. RITUXIMAB [Suspect]
     Active Substance: RITUXIMAB
     Indication: Connective tissue disease-associated interstitial lung disease
     Route: 065

REACTIONS (2)
  - Hypersensitivity [Unknown]
  - Off label use [Unknown]
